FAERS Safety Report 10084564 (Version 2)
Quarter: 2014Q2

REPORT INFORMATION
  Report Type: Report from Study
  Country: US (occurrence: US)
  Receive Date: 20140417
  Receipt Date: 20140417
  Transmission Date: 20141212
  Serious: Yes (Hospitalization)
  Sender: FDA-Public Use
  Company Number: US-UCBSA-118383

PATIENT
  Age: 57 Year
  Sex: Female
  Weight: 126 kg

DRUGS (11)
  1. CIMZIA [Suspect]
     Indication: CROHN^S DISEASE
     Route: 058
     Dates: start: 20091109
  2. 6-MP [Suspect]
     Indication: CROHN^S DISEASE
     Dates: start: 20090311, end: 20130610
  3. COLAZAL [Concomitant]
     Indication: NAUSEA
     Route: 048
     Dates: start: 20090224
  4. TUMS [Concomitant]
  5. LANTUS [Concomitant]
     Dosage: IN THE MORNING
  6. LOVASTATIN [Concomitant]
  7. IBUPROFEN [Concomitant]
  8. ROWASA ENEMA [Concomitant]
     Dosage: AS REQUIRED
     Dates: start: 20090908
  9. NOVOLOG INSULIN [Concomitant]
     Dosage: 7 UNITS IN THE MORNING; 7 UNITS IN THE AFTERNOON; 9 UNITS AT DINNER TIME
  10. NYSTATIN [Concomitant]
  11. ASMANEX [Concomitant]

REACTIONS (1)
  - Drug-induced liver injury [Recovered/Resolved]
